FAERS Safety Report 10975721 (Version 1)
Quarter: 2015Q2

REPORT INFORMATION
  Report Type: Spontaneous
  Country: US (occurrence: US)
  Receive Date: 20150401
  Receipt Date: 20150401
  Transmission Date: 20150821
  Serious: No
  Sender: FDA-Public Use
  Company Number: US-PFIZER INC-2015111765

PATIENT
  Age: 69 Year
  Sex: Female

DRUGS (3)
  1. MILNACIPRAN [Suspect]
     Active Substance: MILNACIPRAN
  2. DOXYCYCLINE HYCLATE. [Suspect]
     Active Substance: DOXYCYCLINE HYCLATE
  3. OXYCODONE [Suspect]
     Active Substance: OXYCODONE

REACTIONS (2)
  - Vomiting [Unknown]
  - Nausea [Unknown]
